FAERS Safety Report 14181810 (Version 2)
Quarter: 2017Q4

REPORT INFORMATION
  Report Type: Report from Study
  Country: JP (occurrence: JP)
  Receive Date: 20171113
  Receipt Date: 20171229
  Transmission Date: 20180321
  Serious: Yes (Death, Other)
  Sender: FDA-Public Use
  Company Number: JP-UCBSA-2017045182

PATIENT
  Age: 79 Year
  Sex: Male
  Weight: 65 kg

DRUGS (9)
  1. NOBELBAR [Concomitant]
     Active Substance: PHENOBARBITAL SODIUM
     Indication: EPILEPSY
     Route: 042
     Dates: start: 20160614, end: 20160614
  2. NOBELBAR [Concomitant]
     Active Substance: PHENOBARBITAL SODIUM
     Route: 042
     Dates: start: 20160617
  3. LEVETIRACETAM. [Suspect]
     Active Substance: LEVETIRACETAM
     Indication: PRODUCT USED FOR UNKNOWN INDICATION
     Dosage: 750 MG, 2X/DAY (BID)
     Route: 041
     Dates: start: 20160614, end: 20160616
  4. OMEPRAZOLE. [Concomitant]
     Active Substance: OMEPRAZOLE
     Indication: PRODUCT USED FOR UNKNOWN INDICATION
     Dosage: UNK
     Dates: start: 20160603, end: 20160702
  5. WAKOBITAL [Concomitant]
     Indication: EPILEPSY
     Route: 054
     Dates: start: 20160615, end: 20160616
  6. AMPHOTERICIN B. [Concomitant]
     Active Substance: AMPHOTERICIN B
     Indication: PRODUCT USED FOR UNKNOWN INDICATION
     Dosage: UNK
     Dates: start: 20160610, end: 20160701
  7. LEVETIRACETAM. [Suspect]
     Active Substance: LEVETIRACETAM
     Indication: OFF LABEL USE
  8. BISOLVON [Concomitant]
     Active Substance: BROMHEXINE HYDROCHLORIDE
     Indication: PRODUCT USED FOR UNKNOWN INDICATION
     Dosage: UNK
     Dates: start: 20160623, end: 20160702
  9. MEROPENEM. [Concomitant]
     Active Substance: MEROPENEM
     Indication: PRODUCT USED FOR UNKNOWN INDICATION
     Dosage: UNK
     Dates: start: 20160610, end: 20160701

REACTIONS (3)
  - Renal failure [Unknown]
  - Death [Fatal]
  - Off label use [Unknown]

NARRATIVE: CASE EVENT DATE: 20160614
